FAERS Safety Report 15265455 (Version 12)
Quarter: 2025Q3

REPORT INFORMATION
  Report Type: Spontaneous
  Country: EU (occurrence: EU)
  Receive Date: 20180810
  Receipt Date: 20250919
  Transmission Date: 20251020
  Serious: Yes (Death, Congenital Anomaly, Other)
  Sender: JOHNSON AND JOHNSON
  Company Number: None

PATIENT
  Age: 1 Day
  Sex: Female
  Weight: 2.1 kg

DRUGS (17)
  1. PREZISTA [Suspect]
     Active Substance: DARUNAVIR ETHANOLATE
     Indication: HIV infection
     Dosage: 1200 MILLIGRAM, QD
     Route: 064
  2. PREZISTA [Suspect]
     Active Substance: DARUNAVIR ETHANOLATE
     Dosage: DOSE DESCRIPTION : 1200 MILLIGRAM DAILY; COURSE 1 DAILY DOSE : 1200 MILLIGRAM
     Route: 064
  3. ISENTRESS [Suspect]
     Active Substance: RALTEGRAVIR POTASSIUM
     Indication: Product used for unknown indication
     Dosage: 800 MILLIGRAM, QD
     Route: 064
  4. ISENTRESS [Suspect]
     Active Substance: RALTEGRAVIR POTASSIUM
     Route: 064
  5. LAMIVUDINE\ZIDOVUDINE [Suspect]
     Active Substance: LAMIVUDINE\ZIDOVUDINE
     Indication: HIV infection
     Route: 064
  6. LAMIVUDINE\ZIDOVUDINE [Suspect]
     Active Substance: LAMIVUDINE\ZIDOVUDINE
     Route: 064
  7. ZIDOVUDINE [Suspect]
     Active Substance: ZIDOVUDINE
     Indication: HIV infection
     Route: 064
  8. ZIDOVUDINE [Suspect]
     Active Substance: ZIDOVUDINE
     Route: 064
  9. FUZEON [Suspect]
     Active Substance: ENFUVIRTIDE
     Indication: HIV infection
     Dosage: 800 MILLIGRAM, QD
     Route: 064
  10. LOPINAVIR\RITONAVIR [Suspect]
     Active Substance: LOPINAVIR\RITONAVIR
     Indication: HIV infection
     Route: 064
  11. PENICILLIN V POTASSIUM [Suspect]
     Active Substance: PENICILLIN V POTASSIUM
     Indication: Product used for unknown indication
     Route: 064
  12. COMBIVIR [Suspect]
     Active Substance: LAMIVUDINE\ZIDOVUDINE
     Indication: Product used for unknown indication
     Route: 064
  13. RETROVIR [Suspect]
     Active Substance: ZIDOVUDINE
     Indication: Product used for unknown indication
     Route: 064
  14. TRUVADA [Suspect]
     Active Substance: EMTRICITABINE\TENOFOVIR DISOPROXIL FUMARATE
     Indication: Product used for unknown indication
     Route: 064
  15. RITONAVIR [Suspect]
     Active Substance: RITONAVIR
     Indication: Product used for unknown indication
     Route: 064
  16. PHENETHICILLIN POTASSIUM [Concomitant]
     Active Substance: PHENETHICILLIN POTASSIUM
     Indication: Product used for unknown indication
     Route: 064
  17. PENICILLIN V POTASSIUM [Concomitant]
     Active Substance: PENICILLIN V POTASSIUM
     Indication: Product used for unknown indication
     Route: 064

REACTIONS (10)
  - Weaning failure [Fatal]
  - Plagiocephaly [Unknown]
  - Foetal exposure during pregnancy [Recovered/Resolved]
  - Heart disease congenital [Unknown]
  - Hypoplastic left heart syndrome [Unknown]
  - Atrioventricular septal defect [Unknown]
  - Pulmonary hypertension [Unknown]
  - Foetal exposure during pregnancy [Recovered/Resolved]
  - Trisomy 21 [Unknown]
  - Gene mutation [Unknown]
